FAERS Safety Report 25188276 (Version 2)
Quarter: 2025Q2

REPORT INFORMATION
  Report Type: Spontaneous
  Country: FR (occurrence: FR)
  Receive Date: 20250411
  Receipt Date: 20250625
  Transmission Date: 20250716
  Serious: Yes (Life-Threatening, Other)
  Sender: RANBAXY
  Company Number: FR-SUN PHARMACEUTICAL INDUSTRIES LTD-2025RR-503116

PATIENT
  Age: 71 Year
  Sex: Male
  Weight: 88 kg

DRUGS (15)
  1. MEROPENEM [Suspect]
     Active Substance: MEROPENEM
     Indication: Lung disorder
     Route: 040
     Dates: start: 20250103, end: 20250111
  2. PANTOPRAZOLE [Suspect]
     Active Substance: PANTOPRAZOLE
     Indication: Prophylaxis against gastrointestinal ulcer
     Dosage: 40 GRAM, DAILY
     Route: 040
     Dates: end: 20250113
  3. ACETAMINOPHEN [Suspect]
     Active Substance: ACETAMINOPHEN
     Indication: Pain
     Route: 040
     Dates: start: 20241230, end: 20250105
  4. PIPERACILLIN SODIUM\TAZOBACTAM SODIUM [Suspect]
     Active Substance: PIPERACILLIN SODIUM\TAZOBACTAM SODIUM
     Indication: Lung disorder
     Dosage: 12 GRAM, DAILY
     Route: 040
     Dates: start: 20250101, end: 20250102
  5. PROPOFOL [Suspect]
     Active Substance: PROPOFOL
     Indication: Sedation
     Route: 040
     Dates: start: 20250103, end: 20250113
  6. OXYCODONE [Suspect]
     Active Substance: OXYCODONE
     Indication: Pain
     Dosage: 5 MILLIGRAM, QID
     Route: 040
     Dates: start: 20250102, end: 20250103
  7. NEFOPAM [Suspect]
     Active Substance: NEFOPAM
     Indication: Pain
     Dosage: 100 MILLIGRAM, DAILY
     Route: 040
     Dates: start: 20241231, end: 20250101
  8. OCTREOTIDE [Suspect]
     Active Substance: OCTREOTIDE
     Indication: Tumour of ampulla of Vater
     Dosage: 100 MCG, TID
     Route: 058
     Dates: start: 20241230, end: 20250109
  9. LINEZOLID [Suspect]
     Active Substance: LINEZOLID
     Indication: Lung disorder
     Dosage: 6 GRAM, DAILY
     Route: 040
     Dates: start: 20250103, end: 20250104
  10. MICAFUNGIN [Suspect]
     Active Substance: MICAFUNGIN SODIUM
     Indication: Lung disorder
     Dosage: 100 MILLIGRAM, DAILY
     Route: 040
     Dates: start: 20250103, end: 20250104
  11. DIAZEPAM [Suspect]
     Active Substance: DIAZEPAM
     Indication: Anxiety
     Dosage: 40 MILLIGRAM, DAILY
     Route: 040
     Dates: start: 20250103, end: 20250104
  12. ENOXAPARIN [Suspect]
     Active Substance: ENOXAPARIN
     Indication: Thrombosis prophylaxis
     Dosage: 0.4 MILLILITER, DAILY
     Route: 058
     Dates: start: 20241230, end: 20250109
  13. HEPARIN [Suspect]
     Active Substance: HEPARIN SODIUM
     Indication: Thrombosis prophylaxis
     Route: 040
     Dates: start: 20250102, end: 20250115
  14. INSULIN NOS [Suspect]
     Active Substance: INSULIN NOS
     Indication: Type 2 diabetes mellitus
     Route: 040
     Dates: start: 20241230
  15. ERYTHROMYCIN [Suspect]
     Active Substance: ERYTHROMYCIN
     Indication: Impaired gastric emptying
     Dosage: 200 MILLIGRAM, QID
     Route: 040
     Dates: start: 20241230, end: 20250103

REACTIONS (2)
  - Anti factor V antibody [Not Recovered/Not Resolved]
  - Shock haemorrhagic [Recovering/Resolving]

NARRATIVE: CASE EVENT DATE: 20250107
